FAERS Safety Report 11632380 (Version 4)
Quarter: 2016Q1

REPORT INFORMATION
  Report Type: Spontaneous
  Country: US (occurrence: US)
  Receive Date: 20151015
  Receipt Date: 20160222
  Transmission Date: 20160525
  Serious: Yes (Other)
  Sender: FDA-Public Use
  Company Number: US-JNJFOC-20151003091

PATIENT
  Age: 24 Year
  Sex: Male

DRUGS (2)
  1. STELARA [Suspect]
     Active Substance: USTEKINUMAB
     Indication: PSORIATIC ARTHROPATHY
     Route: 058
     Dates: start: 20120730, end: 20150914
  2. STELARA [Suspect]
     Active Substance: USTEKINUMAB
     Indication: PSORIASIS
     Route: 058
     Dates: start: 20120730, end: 20150914

REACTIONS (5)
  - Vocal cord paralysis [Recovered/Resolved]
  - Drug ineffective [Unknown]
  - Viral infection [Recovered/Resolved]
  - Blepharitis [Unknown]
  - Rash [Unknown]

NARRATIVE: CASE EVENT DATE: 2015
